FAERS Safety Report 10411236 (Version 2)
Quarter: 2014Q3

REPORT INFORMATION
  Report Type: Spontaneous
  Country: US (occurrence: US)
  Receive Date: 20140826
  Receipt Date: 20140826
  Transmission Date: 20150326
  Serious: No
  Sender: FDA-Public Use
  Company Number: US-ASTRAZENECA-2013SE58183

PATIENT
  Age: 78 Year
  Sex: Female
  Weight: 74.8 kg

DRUGS (4)
  1. THYROID MEDICATION [Concomitant]
     Active Substance: UNSPECIFIED INGREDIENT
     Indication: CARDIAC DISORDER
  2. FLUTICASONE [Concomitant]
     Active Substance: FLUTICASONE\FLUTICASONE PROPIONATE
     Indication: BRONCHITIS
     Dosage: 100MCG DAILY
     Route: 045
     Dates: start: 201307
  3. SYMBICORT [Suspect]
     Active Substance: BUDESONIDE\FORMOTEROL FUMARATE DIHYDRATE
     Indication: ASTHMA
     Dosage: 80MCG/4.5MCG, 2 PUFFS, BID
     Route: 055
     Dates: start: 20130508
  4. MEDICATION FOR HER HEART [Concomitant]
     Indication: CARDIAC DISORDER

REACTIONS (2)
  - Bronchitis [Recovering/Resolving]
  - Intentional product misuse [Unknown]

NARRATIVE: CASE EVENT DATE: 20130716
